FAERS Safety Report 5277491-X (Version None)
Quarter: 2007Q1

REPORT INFORMATION
  Report Type: 
  Country: None (occurrence: None)
  Receive Date: 20070327
  Receipt Date: 20070315
  Transmission Date: 20070707
  Serious: Yes (Hospitalization, Disabling)
  Sender: FDA-Public Use
  Company Number: US-ROCHE-465721

PATIENT
  Age: 19 Year
  Sex: Male

DRUGS (2)
  1. ACCUTANE [Suspect]
     Route: 048
     Dates: start: 20000609
  2. ACCUTANE [Suspect]
     Route: 048
     Dates: start: 20000728, end: 20001205

REACTIONS (8)
  - ANAEMIA [None]
  - COLITIS [None]
  - CROHN'S DISEASE [None]
  - GASTRITIS [None]
  - GASTROINTESTINAL DISORDER [None]
  - INFLAMMATORY BOWEL DISEASE [None]
  - INTESTINAL HAEMORRHAGE [None]
  - SMALL INTESTINAL OBSTRUCTION [None]
